FAERS Safety Report 5826206-2 (Version None)
Quarter: 2008Q3

REPORT INFORMATION
  Report Type: 
  Country: None (occurrence: None)
  Receive Date: 20080723
  Receipt Date: 20080707
  Transmission Date: 20090109
  Serious: Yes (Hospitalization)
  Sender: FDA-Public Use
  Company Number: DSA_32157_2008

PATIENT
  Sex: Female

DRUGS (4)
  1. MONO-TILDIEM (MONO-TILDIEM - DILTIAZEM HYDROCHLORIDE) (NOT SPECIFIED) [Suspect]
     Indication: HYPERTENSION
     Dosage: DF ORAL
     Route: 048
     Dates: start: 20071118, end: 20071119
  2. TENORMIN [Suspect]
     Indication: HYPERTENSION
     Dosage: DF ORAL
     Route: 048
     Dates: end: 20071119
  3. METFORMIN HCL [Concomitant]
  4. LEVOTHYROX [Concomitant]

REACTIONS (7)
  - BLOOD PRESSURE SYSTOLIC INCREASED [None]
  - BRADYCARDIA [None]
  - LEFT VENTRICULAR DYSFUNCTION [None]
  - MITRAL VALVE INCOMPETENCE [None]
  - NODAL ARRHYTHMIA [None]
  - ORTHOSTATIC HYPOTENSION [None]
  - PRESYNCOPE [None]
